FAERS Safety Report 16181584 (Version 1)
Quarter: 2019Q2

REPORT INFORMATION
  Report Type: Spontaneous
  Country: JP (occurrence: JP)
  Receive Date: 20190410
  Receipt Date: 20190410
  Transmission Date: 20190711
  Serious: Yes (Other)
  Sender: FDA-Public Use
  Company Number: JP-BAUSCH-BL-2019-010397

PATIENT
  Sex: Female

DRUGS (9)
  1. VISUDYNE [Suspect]
     Active Substance: VERTEPORFIN
     Route: 042
  2. LUCENTIS [Suspect]
     Active Substance: RANIBIZUMAB
     Dosage: TREAT-AND-EXTEND REGIMEN
     Route: 050
  3. TRIAMCINOLONE [Concomitant]
     Active Substance: TRIAMCINOLONE
     Indication: PRODUCT USED FOR UNKNOWN INDICATION
  4. VISUDYNE [Suspect]
     Active Substance: VERTEPORFIN
     Route: 042
  5. VISUDYNE [Suspect]
     Active Substance: VERTEPORFIN
     Indication: AGE-RELATED MACULAR DEGENERATION
     Route: 042
  6. LUCENTIS [Suspect]
     Active Substance: RANIBIZUMAB
     Dosage: 11-TO-12-WEEKLY FIXED REGIMEN
     Route: 050
  7. LUCENTIS [Suspect]
     Active Substance: RANIBIZUMAB
     Dosage: PRO-RE-NATA REGIMEN
     Route: 050
  8. LUCENTIS [Suspect]
     Active Substance: RANIBIZUMAB
     Indication: AGE-RELATED MACULAR DEGENERATION
     Dosage: PRO-RE-NATA REGIMEN (PRN)
     Route: 031
  9. LUCENTIS [Suspect]
     Active Substance: RANIBIZUMAB
     Dosage: TREAT-AND-EXTEND REGIMEN
     Route: 050

REACTIONS (2)
  - Disease progression [Recovering/Resolving]
  - Age-related macular degeneration [Recovering/Resolving]
